FAERS Safety Report 4586445-8 (Version None)
Quarter: 2005Q1

REPORT INFORMATION
  Report Type: 
  Country: None (occurrence: None)
  Receive Date: 20050218
  Receipt Date: 20050208
  Transmission Date: 20050727
  Serious: Yes (Hospitalization, Other)
  Sender: FDA-Public Use
  Company Number: US-JNJFOC-20041100032

PATIENT
  Sex: Female
  Weight: 72.12 kg

DRUGS (13)
  1. REMICADE [Suspect]
     Route: 042
  2. REMICADE [Suspect]
     Route: 042
  3. REMICADE [Suspect]
     Indication: RHEUMATOID ARTHRITIS
     Route: 042
  4. PLAQUENIL [Concomitant]
     Route: 065
  5. CELCEPT [Concomitant]
     Route: 065
  6. CELCEPT [Concomitant]
     Route: 065
  7. CELCEPT [Concomitant]
     Indication: ARTHRITIS
     Route: 065
  8. CELCEPT [Concomitant]
     Dosage: (500 MG) 1000MG DAILY
     Route: 065
  9. LASIX [Concomitant]
  10. PROTONIX [Concomitant]
  11. ASPIRIN [Concomitant]
  12. PREMARIN [Concomitant]
  13. SINEQUAN [Concomitant]

REACTIONS (5)
  - ALANINE AMINOTRANSFERASE INCREASED [None]
  - ASPARTATE AMINOTRANSFERASE INCREASED [None]
  - BLOOD ALKALINE PHOSPHATASE INCREASED [None]
  - LIVER FUNCTION TEST ABNORMAL [None]
  - NON-HODGKIN'S LYMPHOMA [None]
